FAERS Safety Report 11957500 (Version 1)
Quarter: 2016Q1

REPORT INFORMATION
  Report Type: Spontaneous
  Country: US (occurrence: US)
  Receive Date: 20160126
  Receipt Date: 20160126
  Transmission Date: 20160526
  Serious: Yes (Hospitalization, Other)
  Sender: FDA-Public Use
  Company Number: US-ABBVIE-16P-163-1537975-00

PATIENT
  Sex: Male

DRUGS (3)
  1. DEPAKOTE [Suspect]
     Active Substance: DIVALPROEX SODIUM
     Indication: EPILEPSY
     Route: 065
     Dates: start: 201303
  2. KEPPRA [Suspect]
     Active Substance: LEVETIRACETAM
     Indication: EPILEPSY
     Route: 065
  3. CLONAZEPAM. [Suspect]
     Active Substance: CLONAZEPAM
     Indication: EPILEPSY
     Route: 065
     Dates: start: 2013, end: 2013

REACTIONS (9)
  - Lip injury [Recovered/Resolved]
  - Fall [Recovered/Resolved]
  - Contusion [Recovered/Resolved]
  - Seizure [Recovered/Resolved]
  - Generalised tonic-clonic seizure [Recovered/Resolved]
  - Drug effect decreased [Unknown]
  - Skin abrasion [Recovered/Resolved]
  - Myoclonic epilepsy [Unknown]
  - Feeling drunk [Recovered/Resolved]

NARRATIVE: CASE EVENT DATE: 2013
